FAERS Safety Report 4924627-3 (Version None)
Quarter: 2006Q1

REPORT INFORMATION
  Report Type: 
  Country: None (occurrence: None)
  Receive Date: 20060127
  Receipt Date: 20051018
  Transmission Date: 20060701
  Serious: Yes (Other)
  Sender: FDA-Public Use
  Company Number: 2005145367

PATIENT
  Age: 59 Year
  Sex: Male
  Weight: 95.2554 kg

DRUGS (9)
  1. LYRICA [Suspect]
     Indication: DIABETIC NEUROPATHY
     Dosage: 300 MG (150 MG,2 IN 1 D)
     Dates: start: 20050928
  2. INSULIN (INSULIN) [Concomitant]
  3. ATENOLOL [Concomitant]
  4. NORVASC [Concomitant]
  5. BENICAR [Concomitant]
  6. WARFARIN SODIUM [Concomitant]
  7. VYTORIN [Concomitant]
  8. QUININE SULFATE [Concomitant]
  9. VITAMINS (VITAMINS) [Concomitant]

REACTIONS (1)
  - RASH MACULAR [None]
